FAERS Safety Report 9849045 (Version 1)
Quarter: 2014Q1

REPORT INFORMATION
  Report Type: Spontaneous
  Country: US (occurrence: None)
  Receive Date: 20140124
  Receipt Date: 20140124
  Transmission Date: 20141002
  Serious: Yes (Other)
  Sender: FDA-Public Use
  Company Number: None

PATIENT
  Age: 63 Year
  Sex: Male

DRUGS (1)
  1. TASIGNA (AMN107) CAPSULE, 200 MG [Suspect]
     Dosage: 400MG BID, PO.X 7 MONTHS.

REACTIONS (1)
  - Angioedema [None]
